FAERS Safety Report 9209592 (Version 4)
Quarter: 2013Q2

REPORT INFORMATION
  Report Type: Report from Study
  Country: CH (occurrence: CH)
  Receive Date: 20130404
  Receipt Date: 20130613
  Transmission Date: 20140414
  Serious: Yes (Hospitalization)
  Sender: FDA-Public Use
  Company Number: CH-BRISTOL-MYERS SQUIBB COMPANY-18728717

PATIENT
  Age: 52 Year
  Sex: Male

DRUGS (5)
  1. ERBITUX SOLN FOR INF [Suspect]
     Indication: OESOPHAGEAL CARCINOMA
     Dosage: 15JAN13-04FEB13,?25FEB13-18MAR13 (21 DAYS).
     Route: 042
     Dates: start: 20130115
  2. CISPLATIN FOR INJ [Suspect]
     Indication: OESOPHAGEAL CARCINOMA
     Dosage: 15JAN13-04FEB13?25FEB13-18MAR13 (21 DAYS)-50MG
     Route: 042
     Dates: start: 20130115
  3. TAXOTERE [Suspect]
     Indication: OESOPHAGEAL CARCINOMA
     Dosage: 15JAN13-04FEB13-20DAYS-150MG?25FEB13-18MAR13 (21 DAYS)-40MG
     Route: 042
     Dates: start: 20130115
  4. NOVALGIN [Concomitant]
     Dosage: 1 DF : 60 GTT(20 GTT,3 IN 1 DAY).
     Route: 048
     Dates: start: 201302
  5. PANTOLOC [Concomitant]
     Route: 048
     Dates: start: 2012

REACTIONS (5)
  - General physical health deterioration [Recovered/Resolved]
  - Oesophagitis [Recovered/Resolved]
  - Odynophagia [Recovered/Resolved]
  - Nausea [Recovered/Resolved]
  - Fatigue [Recovered/Resolved]
